FAERS Safety Report 24304428 (Version 1)
Quarter: 2024Q3

REPORT INFORMATION
  Report Type: Spontaneous
  Country: US (occurrence: US)
  Receive Date: 20240910
  Receipt Date: 20240910
  Transmission Date: 20241016
  Serious: No
  Sender: ARMSTRONG
  Company Number: US-Armstrong Pharmaceuticals, Inc.-2161450

PATIENT
  Sex: Female

DRUGS (1)
  1. PRIMATENE MIST [Suspect]
     Active Substance: EPINEPHRINE
     Indication: Chronic obstructive pulmonary disease
     Route: 055

REACTIONS (4)
  - Throat irritation [Unknown]
  - Swelling [Unknown]
  - Throat irritation [Unknown]
  - Throat irritation [Unknown]
